FAERS Safety Report 25772908 (Version 1)
Quarter: 2025Q3

REPORT INFORMATION
  Report Type: Spontaneous
  Country: US (occurrence: US)
  Receive Date: 20250908
  Receipt Date: 20250908
  Transmission Date: 20251021
  Serious: Yes (Life-Threatening, Hospitalization)
  Sender: MYLAN
  Company Number: US-MYLANLABS-2025M1075625

PATIENT
  Age: 71 Year
  Sex: Female

DRUGS (28)
  1. TACROLIMUS [Interacting]
     Active Substance: TACROLIMUS
     Indication: Immunosuppressant drug therapy
  2. TACROLIMUS [Interacting]
     Active Substance: TACROLIMUS
     Route: 065
  3. TACROLIMUS [Interacting]
     Active Substance: TACROLIMUS
     Route: 065
  4. TACROLIMUS [Interacting]
     Active Substance: TACROLIMUS
  5. PHENYTOIN [Suspect]
     Active Substance: PHENYTOIN
     Indication: Toxicity to various agents
  6. PHENYTOIN [Suspect]
     Active Substance: PHENYTOIN
     Route: 065
  7. PHENYTOIN [Suspect]
     Active Substance: PHENYTOIN
     Route: 065
  8. PHENYTOIN [Suspect]
     Active Substance: PHENYTOIN
  9. RIFAMPIN [Suspect]
     Active Substance: RIFAMPIN
     Indication: Toxicity to various agents
  10. RIFAMPIN [Suspect]
     Active Substance: RIFAMPIN
     Route: 065
  11. RIFAMPIN [Suspect]
     Active Substance: RIFAMPIN
     Route: 065
  12. RIFAMPIN [Suspect]
     Active Substance: RIFAMPIN
  13. PAXLOVID [Interacting]
     Active Substance: NIRMATRELVIR\RITONAVIR
     Indication: COVID-19
  14. PAXLOVID [Interacting]
     Active Substance: NIRMATRELVIR\RITONAVIR
     Route: 065
  15. PAXLOVID [Interacting]
     Active Substance: NIRMATRELVIR\RITONAVIR
     Route: 065
  16. PAXLOVID [Interacting]
     Active Substance: NIRMATRELVIR\RITONAVIR
  17. MYCOPHENOLIC ACID [Concomitant]
     Active Substance: MYCOPHENOLIC ACID
     Indication: Immunosuppressant drug therapy
  18. MYCOPHENOLIC ACID [Concomitant]
     Active Substance: MYCOPHENOLIC ACID
     Route: 065
  19. MYCOPHENOLIC ACID [Concomitant]
     Active Substance: MYCOPHENOLIC ACID
     Route: 065
  20. MYCOPHENOLIC ACID [Concomitant]
     Active Substance: MYCOPHENOLIC ACID
  21. PREDNISONE [Concomitant]
     Active Substance: PREDNISONE
     Indication: Immunosuppressant drug therapy
  22. PREDNISONE [Concomitant]
     Active Substance: PREDNISONE
     Route: 065
  23. PREDNISONE [Concomitant]
     Active Substance: PREDNISONE
     Route: 065
  24. PREDNISONE [Concomitant]
     Active Substance: PREDNISONE
  25. REMDESIVIR [Concomitant]
     Active Substance: REMDESIVIR
     Indication: COVID-19
  26. REMDESIVIR [Concomitant]
     Active Substance: REMDESIVIR
     Route: 065
  27. REMDESIVIR [Concomitant]
     Active Substance: REMDESIVIR
     Route: 065
  28. REMDESIVIR [Concomitant]
     Active Substance: REMDESIVIR

REACTIONS (12)
  - Toxicity to various agents [Recovering/Resolving]
  - Coma [Not Recovered/Not Resolved]
  - Cardiac arrest [Unknown]
  - Hypoxic-ischaemic encephalopathy [Not Recovered/Not Resolved]
  - Drug interaction [Recovering/Resolving]
  - Leukocytosis [Unknown]
  - Metabolic acidosis [Unknown]
  - Hypophosphataemia [Unknown]
  - Hypomagnesaemia [Unknown]
  - Diarrhoea [Unknown]
  - Tremor [Unknown]
  - Off label use [Unknown]
